FAERS Safety Report 8140444-8 (Version None)
Quarter: 2012Q1

REPORT INFORMATION
  Report Type: 
  Country: None (occurrence: None)
  Receive Date: 20120216
  Receipt Date: 20120213
  Transmission Date: 20120608
  Serious: Yes (Hospitalization, Other)
  Sender: FDA-Public Use
  Company Number: TR-PFIZER INC-2012039311

PATIENT
  Age: 19 Month
  Sex: Male

DRUGS (1)
  1. DOSTINEX [Suspect]
     Dosage: 2 TABLETS AT 0.5 MG
     Route: 048

REACTIONS (2)
  - HYPOTHERMIA [None]
  - ACCIDENTAL DRUG INTAKE BY CHILD [None]
